FAERS Safety Report 7475202-0 (Version None)
Quarter: 2011Q2

REPORT INFORMATION
  Report Type: 
  Country: None (occurrence: None)
  Receive Date: 20110512
  Receipt Date: 20100709
  Transmission Date: 20111010
  Serious: No
  Sender: FDA-Public Use
  Company Number: A0869493A

PATIENT
  Sex: Female

DRUGS (2)
  1. DYNACIRC CR [Suspect]
     Indication: HYPERTENSION
     Dosage: 5MG PER DAY
     Route: 048
  2. NO CONCURRENT MEDICATION [Concomitant]

REACTIONS (2)
  - SKIN DISCOLOURATION [None]
  - OEDEMA PERIPHERAL [None]
